FAERS Safety Report 4285265-1 (Version None)
Quarter: 2004Q1

REPORT INFORMATION
  Report Type: 
  Country: None (occurrence: None)
  Receive Date: 20040203
  Receipt Date: 20040203
  Transmission Date: 20041129
  Serious: Yes (Life-Threatening, Hospitalization)
  Sender: FDA-Public Use
  Company Number: None

PATIENT
  Sex: Male

DRUGS (7)
  1. HEPARIN [Suspect]
     Indication: DEEP VEIN THROMBOSIS
     Dosage: CONT INF
     Dates: start: 20030713, end: 20030722
  2. RANITIDINE [Concomitant]
  3. STEROIDS (METHYLPREDNISDONE) [Concomitant]
  4. SSI [Concomitant]
  5. APAP TAB [Concomitant]
  6. VANCOMYCIN [Concomitant]
  7. METRONIDAZOLE [Concomitant]

REACTIONS (4)
  - HEPARIN-INDUCED THROMBOCYTOPENIA TEST [None]
  - IMMUNOLOGY TEST [None]
  - LABORATORY TEST ABNORMAL [None]
  - PLATELET COUNT DECREASED [None]
